FAERS Safety Report 8966039 (Version 1)
Quarter: 2012Q4

REPORT INFORMATION
  Report Type: Report from Study
  Country: CH (occurrence: US)
  Receive Date: 20121217
  Receipt Date: 20121217
  Transmission Date: 20130627
  Serious: Yes (Hospitalization)
  Sender: FDA-Public Use
  Company Number: US-BRISTOL-MYERS SQUIBB COMPANY-17192451

PATIENT
  Sex: Male

DRUGS (3)
  1. CISPLATIN [Suspect]
     Indication: HEAD AND NECK CANCER
     Dosage: Last dose: 03-Nov-2010
     Dates: start: 20101001, end: 2010
  2. CETUXIMAB [Suspect]
     Indication: HEAD AND NECK CANCER
     Dosage: Last dose: 16-Nov-2010
     Dates: start: 20101001, end: 2010
  3. BEVACIZUMAB [Suspect]
     Indication: HEAD AND NECK CANCER
     Dosage: Last dose: 16-Nov-2010
     Dates: start: 20101001, end: 2010

REACTIONS (6)
  - Dysphagia [Recovered/Resolved]
  - Pain [Recovered/Resolved]
  - Dehydration [Recovered/Resolved]
  - Mucosal inflammation [Recovered/Resolved]
  - Embolism [Recovered/Resolved]
  - Odynophagia [Recovered/Resolved]
